FAERS Safety Report 16946528 (Version 2)
Quarter: 2019Q4

REPORT INFORMATION
  Report Type: Spontaneous
  Country: US (occurrence: US)
  Receive Date: 20191022
  Receipt Date: 20191209
  Transmission Date: 20200122
  Serious: No
  Sender: FDA-Public Use
  Company Number: US-BAUSCH-BL-2019-057699

PATIENT
  Sex: Male

DRUGS (1)
  1. LUMIFY [Suspect]
     Active Substance: BRIMONIDINE TARTRATE
     Indication: OCULAR HYPERAEMIA
     Dosage: STARTED: USING THE PRODUCT FOR ALMOST TWO YEARS
     Route: 065

REACTIONS (2)
  - Dry eye [Unknown]
  - Eye pruritus [Unknown]
